FAERS Safety Report 7764789-6 (Version None)
Quarter: 2011Q3

REPORT INFORMATION
  Report Type: 
  Country: None (occurrence: None)
  Receive Date: 20110921
  Receipt Date: 20110921
  Transmission Date: 20111222
  Serious: Yes (Other)
  Sender: FDA-Public Use
  Company Number: None

PATIENT
  Age: 17 Year
  Sex: Male
  Weight: 43.091 kg

DRUGS (1)
  1. SOLODYN [Suspect]
     Indication: ACNE
     Dosage: ONE TAB
     Route: 048
     Dates: start: 20100202, end: 20100820

REACTIONS (7)
  - INFLUENZA LIKE ILLNESS [None]
  - RASH [None]
  - ANTINUCLEAR ANTIBODY POSITIVE [None]
  - VITAMIN D DECREASED [None]
  - SINUSITIS [None]
  - SKIN STRIAE [None]
  - JOINT SWELLING [None]
